FAERS Safety Report 17092202 (Version 1)
Quarter: 2019Q4

REPORT INFORMATION
  Report Type: Spontaneous
  Country: US (occurrence: US)
  Receive Date: 20191129
  Receipt Date: 20191129
  Transmission Date: 20200122
  Serious: No
  Sender: FDA-Public Use
  Company Number: US-ASTRAZENECA-2019SF57778

PATIENT
  Sex: Male
  Weight: 127 kg

DRUGS (1)
  1. PULMICORT FLEXHALER [Suspect]
     Active Substance: BUDESONIDE
     Indication: CHRONIC OBSTRUCTIVE PULMONARY DISEASE
     Dosage: 180UG/INHAL TWO TIMES A DAY
     Route: 055
     Dates: start: 20191021

REACTIONS (4)
  - Dyspnoea [Unknown]
  - Wheezing [Unknown]
  - Intentional device misuse [Unknown]
  - Device issue [Unknown]
